FAERS Safety Report 7584819-4 (Version None)
Quarter: 2011Q2

REPORT INFORMATION
  Report Type: 
  Country: None (occurrence: None)
  Receive Date: 20110630
  Receipt Date: 20110623
  Transmission Date: 20111010
  Serious: Yes (Death)
  Sender: FDA-Public Use
  Company Number: PHHY2011AU56930

PATIENT
  Age: 45 Year

DRUGS (2)
  1. CARBAMAZEPINE [Suspect]
  2. METHADONE HCL [Suspect]
     Dosage: UNK

REACTIONS (3)
  - TOXICITY TO VARIOUS AGENTS [None]
  - ACCIDENTAL POISONING [None]
  - OVERDOSE [None]
